FAERS Safety Report 5349992-7 (Version None)
Quarter: 2007Q2

REPORT INFORMATION
  Report Type: 
  Country: None (occurrence: None)
  Receive Date: 20070607
  Receipt Date: 20070514
  Transmission Date: 20071010
  Serious: Yes (Other)
  Sender: FDA-Public Use
  Company Number: BR-PFIZER INC-2007044075

PATIENT
  Sex: Male

DRUGS (3)
  1. SUTENT [Suspect]
     Indication: RENAL CELL CARCINOMA STAGE UNSPECIFIED
     Route: 048
  2. LOSARTAN POTASSIUM [Concomitant]
     Route: 048
  3. PANTOPRAZOLE SODIUM [Concomitant]
     Route: 048
     Dates: start: 20060201

REACTIONS (2)
  - RASH ERYTHEMATOUS [None]
  - SCROTAL ULCER [None]
